FAERS Safety Report 24727379 (Version 2)
Quarter: 2024Q4

REPORT INFORMATION
  Report Type: Report from Study
  Country: DE (occurrence: DE)
  Receive Date: 20241212
  Receipt Date: 20241219
  Transmission Date: 20250115
  Serious: Yes (Death)
  Sender: PFIZER
  Company Number: DE-PFIZER INC-PV202400161414

PATIENT

DRUGS (3)
  1. IDARUBICIN HYDROCHLORIDE [Suspect]
     Active Substance: IDARUBICIN HYDROCHLORIDE
     Indication: Acute myeloid leukaemia
     Dosage: DAY 1, 3, 5/EVERY 4 WEEKS
  2. CYTARABINE [Suspect]
     Active Substance: CYTARABINE
     Indication: Acute myeloid leukaemia
     Dosage: CONTINUOUS INFUSION, DAY 1-7/EVERY 4 WEEKS
  3. SELINEXOR [Suspect]
     Active Substance: SELINEXOR
     Dosage: TWICE WEEKLY STARTING ON DAY 2
     Route: 048

REACTIONS (2)
  - Subarachnoid haemorrhage [Fatal]
  - Thrombocytopenia [Fatal]
